FAERS Safety Report 4467818-0 (Version None)
Quarter: 2004Q4

REPORT INFORMATION
  Report Type: 
  Country: None (occurrence: None)
  Receive Date: 20041004
  Receipt Date: 20040921
  Transmission Date: 20050328
  Serious: Yes (Other)
  Sender: FDA-Public Use
  Company Number: 2004065273

PATIENT
  Age: 76 Year
  Sex: Male

DRUGS (14)
  1. GABAPENTIN [Suspect]
     Indication: ANXIETY
     Dosage: 200 MG (100 MG, 2 IN 1 D), ORAL
     Route: 048
     Dates: start: 20040830, end: 20040908
  2. GABAPENTIN [Suspect]
     Indication: DEMENTIA
     Dosage: 200 MG (100 MG, 2 IN 1 D), ORAL
     Route: 048
     Dates: start: 20040830, end: 20040908
  3. GABAPENTIN [Suspect]
     Indication: DEPRESSION
     Dosage: 200 MG (100 MG, 2 IN 1 D), ORAL
     Route: 048
     Dates: start: 20040830, end: 20040908
  4. RIVASTIGMINE TARTRATE [Suspect]
     Indication: ABNORMAL BEHAVIOUR
     Dosage: 6 MG (3 MG, 2 IN 1 D), ORAL
     Route: 048
     Dates: start: 20040720
  5. RIVASTIGMINE TARTRATE [Suspect]
     Indication: ANXIETY
     Dosage: 6 MG (3 MG, 2 IN 1 D), ORAL
     Route: 048
     Dates: start: 20040720
  6. SALMETEROL XINAFOATE (SALMETEROL XINAFOATE) [Concomitant]
  7. CALCIUM (CALCIUM) [Concomitant]
  8. OXAZEPAM [Concomitant]
  9. WARFARIN SODIUM [Concomitant]
  10. FLUTICASONE PROPIONATE [Concomitant]
  11. SALBUTAMOL (SALBUTAMOL) [Concomitant]
  12. PANTOPRAZOLE (PANTOPRAZOLE) [Concomitant]
  13. ALLOPURINOL [Concomitant]
  14. RAMIPRIL [Concomitant]

REACTIONS (2)
  - ABASIA [None]
  - PLEUROTHOTONUS [None]
